FAERS Safety Report 12565444 (Version 1)
Quarter: 2016Q3

REPORT INFORMATION
  Report Type: Spontaneous
  Country: US (occurrence: None)
  Receive Date: 20160715
  Receipt Date: 20160715
  Transmission Date: 20161109
  Serious: Yes (Other)
  Sender: FDA-Public Use
  Company Number: None

PATIENT
  Age: 58 Year
  Sex: Male

DRUGS (9)
  1. OMEPRAZOLE. [Concomitant]
     Active Substance: OMEPRAZOLE
  2. FOLIC ACID. [Concomitant]
     Active Substance: FOLIC ACID
  3. HUMIRA [Suspect]
     Active Substance: ADALIMUMAB
     Indication: RHEUMATOID ARTHRITIS
     Dosage: EVERY 2 WEEKS
     Route: 058
     Dates: start: 20140816
  4. SULFASALAZINE. [Concomitant]
     Active Substance: SULFASALAZINE
  5. FLOMAX [Concomitant]
     Active Substance: TAMSULOSIN HYDROCHLORIDE
  6. NAPROXEN. [Concomitant]
     Active Substance: NAPROXEN
  7. PROSCAR [Concomitant]
     Active Substance: FINASTERIDE
  8. METHOTREXATE. [Concomitant]
     Active Substance: METHOTREXATE
  9. CALCIUM + VITAMIN D [Concomitant]
     Active Substance: CALCIUM\VITAMIN D

REACTIONS (1)
  - Prostate cancer [None]

NARRATIVE: CASE EVENT DATE: 20160628
